FAERS Safety Report 5057394-6 (Version None)
Quarter: 2006Q3

REPORT INFORMATION
  Report Type: 
  Country: None (occurrence: None)
  Receive Date: 20060721
  Receipt Date: 20050919
  Transmission Date: 20061208
  Serious: No
  Sender: FDA-Public Use
  Company Number: US-GLAXOSMITHKLINE-A0574837A

PATIENT
  Age: 56 Year
  Sex: Female

DRUGS (9)
  1. AVANDIA [Suspect]
     Route: 048
     Dates: start: 20040220, end: 20040401
  2. ACTOS [Concomitant]
  3. GLUCOVANCE [Concomitant]
  4. COZAAR [Concomitant]
  5. PLAVIX [Concomitant]
  6. ASPIRIN [Concomitant]
  7. PROPRANOLOL [Concomitant]
  8. TRIAMTERENE AND HYDROCHLOROTHIAZIDE [Concomitant]
  9. GLUCOTROL [Concomitant]

REACTIONS (3)
  - DYSPNOEA [None]
  - OEDEMA [None]
  - WEIGHT INCREASED [None]
